FAERS Safety Report 7369312-6 (Version None)
Quarter: 2011Q1

REPORT INFORMATION
  Report Type: 
  Country: None (occurrence: None)
  Receive Date: 20110323
  Receipt Date: 20110322
  Transmission Date: 20110831
  Serious: Yes (Death, Other)
  Sender: FDA-Public Use
  Company Number: B0704772A

PATIENT
  Age: 72 Year
  Sex: Male

DRUGS (1)
  1. REVOLADE [Suspect]
     Indication: THROMBOTIC THROMBOCYTOPENIC PURPURA
     Dosage: 50MG PER DAY
     Route: 048
     Dates: start: 20110125, end: 20110228

REACTIONS (2)
  - PLATELET COUNT DECREASED [None]
  - CEREBRAL HAEMORRHAGE [None]
